FAERS Safety Report 17953117 (Version 2)
Quarter: 2020Q3

REPORT INFORMATION
  Report Type: Spontaneous
  Country: JP (occurrence: JP)
  Receive Date: 20200627
  Receipt Date: 20200805
  Transmission Date: 20201103
  Serious: Yes (Hospitalization, Other)
  Sender: FDA-Public Use
  Company Number: JP-AMGEN-JPNSP2020078431

PATIENT
  Age: 56 Year
  Sex: Female

DRUGS (2)
  1. INOTUZUMAB [Suspect]
     Active Substance: INOTUZUMAB OZOGAMICIN
     Indication: PRODUCT USED FOR UNKNOWN INDICATION
     Dosage: UNK
     Route: 065
  2. BLINCYTO [Suspect]
     Active Substance: BLINATUMOMAB
     Indication: LEUKAEMIA RECURRENT PROPHYLAXIS
     Dosage: 28 MICROGRAM, QD
     Route: 041
     Dates: start: 20200327, end: 20200423

REACTIONS (2)
  - Venoocclusive disease [Not Recovered/Not Resolved]
  - Acute lymphocytic leukaemia [Recovering/Resolving]

NARRATIVE: CASE EVENT DATE: 20200423
